FAERS Safety Report 22179492 (Version 1)
Quarter: 2023Q2

REPORT INFORMATION
  Report Type: Spontaneous
  Country: DE (occurrence: DE)
  Receive Date: 20230406
  Receipt Date: 20230406
  Transmission Date: 20230722
  Serious: Yes (Other)
  Sender: FDA-Public Use
  Company Number: None

PATIENT
  Age: 10 Year
  Sex: Male
  Weight: 27.3 kg

DRUGS (4)
  1. IBUPROFEN [Suspect]
     Active Substance: IBUPROFEN
     Indication: Pain
     Dosage: 200 MILLIGRAM, QD (EVERY 1 DAY), ORODISPERSIBLE TABLET
     Route: 048
     Dates: start: 20220120, end: 20220122
  2. IBUPROFEN [Suspect]
     Active Substance: IBUPROFEN
     Indication: Coronavirus infection
     Dosage: 200 MILLIGRAM, QD (EVERY 1 DAY), ORODISPERSIBLE TABLET
     Route: 048
     Dates: start: 20221121
  3. IBUPROFEN [Suspect]
     Active Substance: IBUPROFEN
     Indication: Influenza
  4. HERBALS [Concomitant]
     Active Substance: HERBALS
     Indication: Product used for unknown indication
     Dosage: 4.3 MILLILITER, TID (EVERY 8 HOUR)
     Route: 065
     Dates: start: 202211

REACTIONS (7)
  - Hallucination [Recovered/Resolved]
  - Abnormal dreams [Recovered/Resolved]
  - Anxiety [Recovered/Resolved]
  - Confusional state [Recovered/Resolved]
  - Confusional state [Recovered/Resolved]
  - Crying [Recovered/Resolved]
  - Disorientation [Recovered/Resolved]

NARRATIVE: CASE EVENT DATE: 20220120
